FAERS Safety Report 8414062-8 (Version None)
Quarter: 2012Q2

REPORT INFORMATION
  Report Type: 
  Country: None (occurrence: None)
  Receive Date: 20120605
  Receipt Date: 20120530
  Transmission Date: 20120825
  Serious: Yes (Hospitalization, Other)
  Sender: FDA-Public Use
  Company Number: US-ELI_LILLY_AND_COMPANY-US201205008080

PATIENT
  Sex: Female

DRUGS (1)
  1. HUMATROPE [Suspect]
     Dosage: 0.4 MG, QD

REACTIONS (7)
  - DRUG DOSE OMISSION [None]
  - ADDISON'S DISEASE [None]
  - RENAL FAILURE CHRONIC [None]
  - ABDOMINAL DISCOMFORT [None]
  - IRON DEFICIENCY ANAEMIA [None]
  - HOSPITALISATION [None]
  - FATIGUE [None]
